FAERS Safety Report 18912728 (Version 3)
Quarter: 2021Q2

REPORT INFORMATION
  Report Type: Other
  Country: US (occurrence: US)
  Receive Date: 20210219
  Receipt Date: 20210419
  Transmission Date: 20210717
  Serious: Yes (Other)
  Sender: FDA-Public Use
  Company Number: US-ROCHE-2766379

PATIENT
  Sex: Male

DRUGS (1)
  1. ROZLYTREK [Suspect]
     Active Substance: ENTRECTINIB
     Indication: BRAIN NEOPLASM MALIGNANT
     Dosage: TAKE 3 CAPSULE(S) BY MOUTH EVERY DAY
     Route: 048

REACTIONS (2)
  - Splenic neoplasm malignancy unspecified [Unknown]
  - Off label use [Unknown]
